FAERS Safety Report 19407627 (Version 1)
Quarter: 2021Q2

REPORT INFORMATION
  Report Type: Spontaneous
  Country: CN (occurrence: CN)
  Receive Date: 20210611
  Receipt Date: 20210611
  Transmission Date: 20210717
  Serious: Yes (Hospitalization, Other)
  Sender: FDA-Public Use
  Company Number: CN-ASTRAZENECA-2021A474305

PATIENT
  Age: 85 Year
  Sex: Female

DRUGS (2)
  1. TAGRISSO [Suspect]
     Active Substance: OSIMERTINIB
     Indication: LUNG NEOPLASM MALIGNANT
     Dosage: ABOUT HALF A MONTH AGO, THE DRUG WAS STOPPED DUE TO THE SYMPTOM OF HEMOPTYSIS, AND THE SPECIFIC D...
     Route: 048
  2. TAGRISSO [Suspect]
     Active Substance: OSIMERTINIB
     Indication: LUNG NEOPLASM MALIGNANT
     Route: 048
     Dates: start: 202104

REACTIONS (7)
  - Neoplasm progression [Not Recovered/Not Resolved]
  - Somnolence [Unknown]
  - Haemoptysis [Recovering/Resolving]
  - Mental disorder [Unknown]
  - Drug ineffective [Unknown]
  - Malignant neoplasm progression [Unknown]
  - Ill-defined disorder [Unknown]
